FAERS Safety Report 12445447 (Version 2)
Quarter: 2016Q2

REPORT INFORMATION
  Report Type: Spontaneous
  Country: US (occurrence: US)
  Receive Date: 20160608
  Receipt Date: 20160609
  Transmission Date: 20160815
  Serious: No
  Sender: FDA-Public Use
  Company Number: US-JNJFOC-20160411971

PATIENT
  Age: 12 Year
  Sex: Male
  Weight: 54.43 kg

DRUGS (4)
  1. PATRIOT RISPERIDONE [Suspect]
     Active Substance: RISPERIDONE
     Indication: AFFECTIVE DISORDER
     Route: 048
     Dates: start: 201601, end: 201602
  2. PATRIOT RISPERIDONE [Suspect]
     Active Substance: RISPERIDONE
     Indication: ATTENTION DEFICIT/HYPERACTIVITY DISORDER
     Route: 048
     Dates: start: 201601, end: 201602
  3. LITHOBID [Concomitant]
     Active Substance: LITHIUM CARBONATE
     Route: 065
  4. FOCALIN [Concomitant]
     Active Substance: DEXMETHYLPHENIDATE HYDROCHLORIDE
     Route: 065

REACTIONS (9)
  - Abnormal behaviour [Recovered/Resolved]
  - Disturbance in social behaviour [Recovered/Resolved]
  - Off label use [Unknown]
  - Drug ineffective for unapproved indication [Unknown]
  - Emotional disorder [Recovered/Resolved]
  - Educational problem [Recovered/Resolved]
  - Aggression [Recovered/Resolved]
  - Anger [Recovered/Resolved]
  - Product use issue [Unknown]

NARRATIVE: CASE EVENT DATE: 201601
